FAERS Safety Report 6578655-5 (Version None)
Quarter: 2010Q1

REPORT INFORMATION
  Report Type: 
  Country: None (occurrence: None)
  Receive Date: 20100211
  Receipt Date: 20100203
  Transmission Date: 20100710
  Serious: Yes (Hospitalization)
  Sender: FDA-Public Use
  Company Number: DE-AMGEN-US384464

PATIENT
  Sex: Male
  Weight: 72 kg

DRUGS (4)
  1. ENBREL [Suspect]
     Indication: ANKYLOSING SPONDYLITIS
     Route: 058
     Dates: start: 20090930, end: 20091201
  2. VOLTAREN [Concomitant]
  3. PANTOZOL [Concomitant]
  4. BERLOSIN [Concomitant]

REACTIONS (4)
  - ANKYLOSING SPONDYLITIS [None]
  - CONDITION AGGRAVATED [None]
  - MENISCAL DEGENERATION [None]
  - SYNOVIAL CYST [None]
